FAERS Safety Report 5750273-8 (Version None)
Quarter: 2008Q2

REPORT INFORMATION
  Report Type: 
  Country: None (occurrence: None)
  Receive Date: 20080522
  Receipt Date: 20080522
  Transmission Date: 20081010
  Serious: No
  Sender: FDA-Public Use
  Company Number: None

PATIENT
  Age: 36 Year
  Sex: Male
  Weight: 104.7809 kg

DRUGS (3)
  1. MAGNEVIST [Suspect]
     Indication: NUCLEAR MAGNETIC RESONANCE IMAGING BRAIN
     Dosage: 20CC X1 IV INJ
     Route: 042
     Dates: start: 20080520
  2. MAGNEVIST [Suspect]
     Indication: SYNCOPE
     Dosage: 20CC X1 IV INJ
     Route: 042
     Dates: start: 20080520
  3. MAGNEVIST [Suspect]
     Indication: VOMITING
     Dosage: 20CC X1 IV INJ
     Route: 042
     Dates: start: 20080520

REACTIONS (2)
  - NAUSEA [None]
  - VOMITING [None]
